FAERS Safety Report 7899153-2 (Version None)
Quarter: 2011Q4

REPORT INFORMATION
  Report Type: 
  Country: None (occurrence: None)
  Receive Date: 20111107
  Receipt Date: 20110914
  Transmission Date: 20120403
  Serious: No
  Sender: FDA-Public Use
  Company Number: US-AMGEN-USASP2011033505

PATIENT
  Age: 53 Year
  Sex: Female

DRUGS (11)
  1. ENBREL [Suspect]
     Indication: PSORIASIS
     Dosage: 50 MG, 2 TIMES/WK
     Route: 030
     Dates: start: 20110602
  2. ALVESCO [Concomitant]
  3. ENBREL [Suspect]
     Indication: PSORIATIC ARTHROPATHY
  4. MELOXICAM [Concomitant]
  5. LEXAPRO [Concomitant]
  6. NEXIUM [Concomitant]
  7. ZYRTEC [Concomitant]
  8. XOPENEX [Concomitant]
  9. ACTONEL [Concomitant]
  10. ATARAX [Concomitant]
  11. CLONAZEPAM [Concomitant]

REACTIONS (7)
  - CHANGE OF BOWEL HABIT [None]
  - PSORIATIC ARTHROPATHY [None]
  - RECTAL TENESMUS [None]
  - MALAISE [None]
  - NAUSEA [None]
  - PAIN IN EXTREMITY [None]
  - PSORIASIS [None]
